FAERS Safety Report 4851963-1 (Version None)
Quarter: 2005Q4

REPORT INFORMATION
  Report Type: 
  Country: None (occurrence: None)
  Receive Date: 20051213
  Receipt Date: 20040924
  Transmission Date: 20060501
  Serious: Yes (Death, Hospitalization, Other)
  Sender: FDA-Public Use
  Company Number: GB-BRISTOL-MYERS SQUIBB COMPANY-12711313

PATIENT
  Age: 57 Year
  Sex: Female

DRUGS (4)
  1. CISPLATIN [Suspect]
     Indication: BLADDER CANCER
     Dosage: START DATE:  29-MAR-2004
     Dates: start: 20040713, end: 20040713
  2. PACLITAXEL [Suspect]
     Indication: BLADDER CANCER
     Dosage: START DATE:  29-MAR-2004.  DAY 1 AND 8
     Dates: start: 20040713, end: 20040713
  3. GEMCITABINE [Suspect]
     Indication: BLADDER CANCER
     Dosage: START DATE:  29-MAR-2004.  DAY 1 AND 8
     Dates: start: 20040713, end: 20040713
  4. DOCUSATE SODIUM [Concomitant]

REACTIONS (4)
  - BLADDER CANCER [None]
  - HEMIPLEGIA [None]
  - LHERMITTE'S SIGN [None]
  - PERIPHERAL SENSORY NEUROPATHY [None]
